FAERS Safety Report 7027443-4 (Version None)
Quarter: 2010Q4

REPORT INFORMATION
  Report Type: 
  Country: None (occurrence: None)
  Receive Date: 20101001
  Receipt Date: 20101001
  Transmission Date: 20110411
  Serious: Yes (Other)
  Sender: FDA-Public Use
  Company Number: None

PATIENT
  Age: 49 Year
  Sex: Female
  Weight: 127.9144 kg

DRUGS (2)
  1. DEPAKOTE ER [Suspect]
     Indication: CONVULSION
     Dosage: 500 MG PO BID
     Route: 048
     Dates: start: 20100503
  2. DEPAKOTE ER [Suspect]
     Indication: CONVULSION
     Dosage: 500 MG PO BID
     Route: 048
     Dates: start: 20100515

REACTIONS (2)
  - DEPRESSION [None]
  - NAUSEA [None]
